FAERS Safety Report 9516694 (Version 5)
Quarter: 2013Q4

REPORT INFORMATION
  Report Type: Spontaneous
  Country: US (occurrence: US)
  Receive Date: 20130911
  Receipt Date: 20131126
  Transmission Date: 20140711
  Serious: Yes (Hospitalization, Other)
  Sender: FDA-Public Use
  Company Number: US-009507513-1203USA01349

PATIENT
  Sex: Male

DRUGS (4)
  1. FOSAMAX [Suspect]
     Indication: OSTEOPOROSIS
     Dosage: 70 MG, QW
     Route: 048
     Dates: start: 20020121, end: 20070112
  2. FOSAMAX [Suspect]
     Dosage: 10 MG, QD
     Route: 048
  3. FOSAMAX [Suspect]
     Indication: OSTEOPOROSIS
     Dosage: 70 MG, UNK
     Route: 048
     Dates: start: 20080221, end: 20080601
  4. ALENDRONATE SODIUM [Suspect]
     Indication: OSTEOPOROSIS
     Dosage: 70 MG, UNK
     Route: 048
     Dates: start: 2008

REACTIONS (28)
  - Femur fracture [Unknown]
  - Femur fracture [Unknown]
  - Open reduction of fracture [Recovering/Resolving]
  - Open reduction of fracture [Unknown]
  - Hip arthroplasty [Unknown]
  - Hip arthroplasty [Unknown]
  - Hip arthroplasty [Unknown]
  - Hip arthroplasty [Recovering/Resolving]
  - Squamous cell carcinoma [Unknown]
  - Coronary artery bypass [Unknown]
  - Coronary artery bypass [Unknown]
  - Hip surgery [Unknown]
  - Anaemia postoperative [Recovered/Resolved]
  - Atrial fibrillation [Not Recovered/Not Resolved]
  - Cardiac failure congestive [Not Recovered/Not Resolved]
  - Angina pectoris [Unknown]
  - Anxiety [Unknown]
  - Stress [Unknown]
  - Knee arthroplasty [Unknown]
  - Fall [Unknown]
  - Upper limb fracture [Unknown]
  - Cardiac disorder [Unknown]
  - Skin lesion [Unknown]
  - Osteoarthritis [Unknown]
  - Sleep apnoea syndrome [Unknown]
  - Neuropathy peripheral [Unknown]
  - Drug ineffective [Unknown]
  - Nausea [Unknown]
